FAERS Safety Report 12865936 (Version 3)
Quarter: 2016Q4

REPORT INFORMATION
  Report Type: Spontaneous
  Country: SE (occurrence: SE)
  Receive Date: 20161020
  Receipt Date: 20161115
  Transmission Date: 20170207
  Serious: Yes (Life-Threatening, Hospitalization)
  Sender: FDA-Public Use
  Company Number: SE-BRISTOL-MYERS SQUIBB COMPANY-BMS-2016-086112

PATIENT
  Sex: Female

DRUGS (4)
  1. ELIQUIS [Suspect]
     Active Substance: APIXABAN
     Indication: CEREBROVASCULAR ACCIDENT PROPHYLAXIS
     Dosage: 2.5 MG, BID
     Route: 065
     Dates: start: 20160704
  2. BISOPROLOL [Concomitant]
     Active Substance: BISOPROLOL
     Indication: PRODUCT USED FOR UNKNOWN INDICATION
     Route: 065
  3. ENALAPRIL KRKA [Concomitant]
     Active Substance: ENALAPRIL MALEATE
     Indication: HYPERTENSION
     Dosage: 20 MG, UNK
     Route: 065
     Dates: start: 2016
  4. MIRTAZAPIN KRKA [Concomitant]
     Active Substance: MIRTAZAPINE
     Indication: ANXIETY
     Route: 065

REACTIONS (5)
  - Heart rate decreased [Not Recovered/Not Resolved]
  - Rash macular [Unknown]
  - Tension headache [Recovered/Resolved]
  - Tinnitus [Not Recovered/Not Resolved]
  - Dizziness [Not Recovered/Not Resolved]
